FAERS Safety Report 16743641 (Version 8)
Quarter: 2021Q1

REPORT INFORMATION
  Report Type: Report from Study
  Country: JP (occurrence: JP)
  Receive Date: 20190827
  Receipt Date: 20210204
  Transmission Date: 20210419
  Serious: Yes (Life-Threatening, Hospitalization, Other)
  Sender: FDA-Public Use
  Company Number: JP-ASTELLAS-2019JP018216

PATIENT
  Age: 59 Year
  Sex: Female
  Weight: 40 kg

DRUGS (75)
  1. HEPARINOID [Concomitant]
     Active Substance: CHONDROITIN SULFATE (BOVINE)
     Indication: RASH
  2. CARVEDILOL. [Concomitant]
     Active Substance: CARVEDILOL
     Route: 048
     Dates: start: 20191011, end: 20191016
  3. FUNGUARD [Concomitant]
     Active Substance: MICAFUNGIN SODIUM
     Indication: FEBRILE NEUTROPENIA
     Route: 041
     Dates: start: 20190914, end: 20190923
  4. VANCOMYCIN [Concomitant]
     Active Substance: VANCOMYCIN
     Indication: MYELOSUPPRESSION
     Route: 041
     Dates: start: 20190817, end: 20190817
  5. SPIRONOLACTONE. [Concomitant]
     Active Substance: SPIRONOLACTONE
     Indication: LONG QT SYNDROME
     Route: 048
     Dates: start: 20190819, end: 20190823
  6. K?SUPPLY [Concomitant]
     Active Substance: POTASSIUM CHLORIDE
     Route: 048
     Dates: start: 20190913, end: 20191002
  7. MAGNESIUM SULFATE. [Concomitant]
     Active Substance: MAGNESIUM SULFATE
     Route: 041
     Dates: start: 20190823, end: 20191006
  8. GLUCOSE [Concomitant]
     Active Substance: DEXTROSE
     Indication: PROPHYLAXIS
     Route: 041
     Dates: start: 20191002, end: 20191002
  9. HYDREA [Concomitant]
     Active Substance: HYDROXYUREA
     Route: 048
     Dates: start: 20191016, end: 20191016
  10. ASP2215 [Suspect]
     Active Substance: GILTERITINIB
     Indication: ACUTE MYELOID LEUKAEMIA REFRACTORY
     Route: 048
     Dates: start: 20190815, end: 20190818
  11. AMPICILLIN AND SULBACTAM [Concomitant]
     Active Substance: AMPICILLIN SODIUM\SULBACTAM SODIUM
     Indication: MYELOSUPPRESSION
     Dosage: UNK UNK, UNKNOWN FREQ.
     Route: 065
  12. ALLOPURINOL. [Concomitant]
     Active Substance: ALLOPURINOL
     Route: 048
     Dates: start: 20191015, end: 20191016
  13. RECOMODULIN [Concomitant]
     Active Substance: THROMBOMODULIN ALFA
     Dosage: UNK, ONCE DAILY
     Route: 041
     Dates: start: 20191002, end: 20191002
  14. MEROPENEM. [Concomitant]
     Active Substance: MEROPENEM
     Indication: FEBRILE NEUTROPENIA
     Route: 041
     Dates: start: 20190813, end: 20190820
  15. MAGNESIUM SULFATE. [Concomitant]
     Active Substance: MAGNESIUM SULFATE
     Indication: HYPOMAGNESAEMIA
     Route: 041
     Dates: start: 20190819, end: 20190822
  16. SOLU?CORTEF [Concomitant]
     Active Substance: HYDROCORTISONE SODIUM SUCCINATE
     Indication: LONG QT SYNDROME
     Route: 041
     Dates: start: 20190825, end: 20190825
  17. NERISONA [Concomitant]
     Active Substance: DIFLUCORTOLONE VALERATE
     Indication: SKIN MASS
     Dosage: ADEQUATE DOSE, TWICE DAILY
     Route: 061
     Dates: start: 20190911, end: 20191016
  18. NERISONA [Concomitant]
     Active Substance: DIFLUCORTOLONE VALERATE
     Indication: RASH
  19. VFEND [Concomitant]
     Active Substance: VORICONAZOLE
     Route: 041
     Dates: start: 20190925, end: 20190930
  20. ACELIO [Concomitant]
     Active Substance: ACETAMINOPHEN
     Indication: PYREXIA
     Route: 041
     Dates: start: 20191003, end: 20191003
  21. RECOMODULIN [Concomitant]
     Active Substance: THROMBOMODULIN ALFA
     Indication: DISSEMINATED INTRAVASCULAR COAGULATION
     Dosage: UNK UNK, ONCE DAILY
     Route: 041
     Dates: start: 20190811, end: 20190815
  22. MAGNESIUM OXIDE. [Concomitant]
     Active Substance: MAGNESIUM OXIDE
     Indication: HYPOMAGNESAEMIA
     Dosage: 660?990MG, 2 TO 3 TIMES DAILY
     Route: 048
     Dates: start: 20190816, end: 20190819
  23. MINOPHAGEN C [CYSTEINE;GLYCINE;GLYCYRRHIZIC ACID] [Concomitant]
     Indication: RASH
  24. PASIL [Concomitant]
     Active Substance: PAZUFLOXACIN MESILATE
     Indication: FEBRILE NEUTROPENIA
     Route: 041
     Dates: start: 20190920, end: 20190926
  25. VFEND [Concomitant]
     Active Substance: VORICONAZOLE
     Indication: PROPHYLAXIS
     Route: 041
     Dates: start: 20190924, end: 20190924
  26. GRANISETRON [Concomitant]
     Active Substance: GRANISETRON
     Indication: VOMITING
     Route: 041
     Dates: start: 20191002, end: 20191002
  27. CARVEDILOL. [Concomitant]
     Active Substance: CARVEDILOL
     Indication: CARDIAC FAILURE ACUTE
     Route: 048
     Dates: start: 20191008, end: 20191010
  28. AMPICILLIN [Concomitant]
     Active Substance: AMPICILLIN
     Indication: MYELOSUPPRESSION
     Dosage: UNK UNK, UNKNOWN FREQ.
     Route: 065
  29. K?SUPPLY [Concomitant]
     Active Substance: POTASSIUM CHLORIDE
     Indication: HYPOKALAEMIA
     Dosage: 2.4?4.8G/DAILY, 2 TO 4 TIMES DAILY
     Route: 048
     Dates: start: 20190814, end: 20190818
  30. K?SUPPLY [Concomitant]
     Active Substance: POTASSIUM CHLORIDE
     Dosage: 7.2?9.6G, 4 TIMES DAILY
     Route: 048
     Dates: start: 20190819, end: 20190822
  31. K?SUPPLY [Concomitant]
     Active Substance: POTASSIUM CHLORIDE
     Route: 048
     Dates: start: 20191007, end: 20191016
  32. FUNGUARD [Concomitant]
     Active Substance: MICAFUNGIN SODIUM
     Indication: MYELOSUPPRESSION
     Route: 041
     Dates: start: 20190816, end: 20190902
  33. FUROSEMIDE. [Concomitant]
     Active Substance: FUROSEMIDE
     Indication: LONG QT SYNDROME
     Route: 041
     Dates: start: 20190818, end: 20190818
  34. POTASSIUM CANRENOATE [Concomitant]
     Active Substance: CANRENOATE POTASSIUM
     Indication: LONG QT SYNDROME
     Route: 041
     Dates: start: 20190819, end: 20190822
  35. TAZOPIPE [Concomitant]
     Active Substance: PIPERACILLIN SODIUM\TAZOBACTAM SODIUM
     Route: 041
     Dates: start: 20190908, end: 20190918
  36. FLUCONAZOLE. [Concomitant]
     Active Substance: FLUCONAZOLE
     Indication: PROPHYLAXIS
     Route: 048
     Dates: start: 20190903, end: 20190923
  37. MINOPHAGEN C [CYSTEINE;GLYCINE;GLYCYRRHIZIC ACID] [Concomitant]
     Indication: LIVER DISORDER
     Route: 041
     Dates: start: 20190913, end: 20190913
  38. NITOROL [Concomitant]
     Active Substance: ISOSORBIDE DINITRATE
     Indication: CARDIAC FAILURE ACUTE
     Route: 041
     Dates: start: 20191003, end: 20191006
  39. HYDREA [Concomitant]
     Active Substance: HYDROXYUREA
     Indication: ACUTE MYELOID LEUKAEMIA
     Route: 048
     Dates: start: 20191015, end: 20191015
  40. ASP2215 [Suspect]
     Active Substance: GILTERITINIB
     Route: 048
     Dates: start: 20190819, end: 20190826
  41. ASP2215 [Suspect]
     Active Substance: GILTERITINIB
     Route: 048
     Dates: start: 20190924, end: 20191001
  42. MICAFUNGIN SODIUM [Concomitant]
     Active Substance: MICAFUNGIN SODIUM
     Indication: MYELOSUPPRESSION
     Dosage: UNK UNK, UNKNOWN FREQ.
     Route: 065
  43. TOBRACIN [TOBRAMYCIN] [Concomitant]
     Active Substance: TOBRAMYCIN
     Indication: MYELOSUPPRESSION
     Route: 041
     Dates: start: 20190803, end: 20190814
  44. TOBRACIN [TOBRAMYCIN] [Concomitant]
     Active Substance: TOBRAMYCIN
     Indication: FEBRILE NEUTROPENIA
     Route: 041
     Dates: start: 20190816, end: 20190817
  45. ALLOPURINOL. [Concomitant]
     Active Substance: ALLOPURINOL
     Indication: HYPERURICAEMIA
     Route: 048
     Dates: start: 20190811, end: 20190826
  46. MEROPENEM. [Concomitant]
     Active Substance: MEROPENEM
     Route: 041
     Dates: start: 20190918, end: 20190926
  47. FUROSEMIDE. [Concomitant]
     Active Substance: FUROSEMIDE
     Route: 041
     Dates: start: 20191007, end: 20191010
  48. TAZOPIPE [Concomitant]
     Active Substance: PIPERACILLIN SODIUM\TAZOBACTAM SODIUM
     Indication: FEBRILE NEUTROPENIA
     Route: 041
     Dates: start: 20190820, end: 20190905
  49. TAZOPIPE [Concomitant]
     Active Substance: PIPERACILLIN SODIUM\TAZOBACTAM SODIUM
     Route: 041
     Dates: start: 20190928, end: 20191016
  50. TRAZENTA [Concomitant]
     Active Substance: LINAGLIPTIN
     Indication: RASH
     Route: 048
     Dates: start: 20190911, end: 20191002
  51. FEXOFENADINE HYDROCHLORIDE. [Concomitant]
     Active Substance: FEXOFENADINE HYDROCHLORIDE
     Indication: RASH
     Route: 048
     Dates: start: 20190913, end: 20190919
  52. PASIL [Concomitant]
     Active Substance: PAZUFLOXACIN MESILATE
     Route: 041
     Dates: start: 20191001, end: 20191016
  53. ACLACINON [Concomitant]
     Active Substance: ACLARUBICIN HYDROCHLORIDE
     Indication: ACUTE MYELOID LEUKAEMIA REFRACTORY
     Dosage: 20 MG/DAY, UNKNOWN FREQ.
     Route: 041
     Dates: start: 20191002, end: 20191002
  54. CYLOCIDE [Concomitant]
     Active Substance: CYTARABINE
     Indication: ACUTE MYELOID LEUKAEMIA REFRACTORY
     Route: 041
     Dates: start: 20191002, end: 20191002
  55. ENALAPRIL MALEATE. [Concomitant]
     Active Substance: ENALAPRIL MALEATE
     Indication: CARDIAC FAILURE ACUTE
     Route: 048
     Dates: start: 20191008, end: 20191016
  56. CEFEPIME DIHYDROCHLORIDE [Concomitant]
     Active Substance: CEFEPIME HYDROCHLORIDE
     Indication: MYELOSUPPRESSION
     Dosage: UNK UNK, UNKNOWN FREQ.
     Route: 065
  57. LANSOPRAZOLE. [Concomitant]
     Active Substance: LANSOPRAZOLE
     Indication: PROPHYLAXIS
     Route: 048
     Dates: start: 20190617, end: 20191016
  58. MIYA?BM [Concomitant]
     Active Substance: CLOSTRIDIUM BUTYRICUM SPORES STRAIN M-55
     Indication: DYSBIOSIS
     Route: 048
     Dates: start: 20190628, end: 20191016
  59. ALLOPURINOL. [Concomitant]
     Active Substance: ALLOPURINOL
     Route: 048
     Dates: start: 20190930, end: 20191002
  60. K?SUPPLY [Concomitant]
     Active Substance: POTASSIUM CHLORIDE
     Dosage: UNK UNK, TWICE DAILY
     Route: 048
     Dates: start: 20190823, end: 20190912
  61. CALONAL [Concomitant]
     Active Substance: ACETAMINOPHEN
     Indication: PYREXIA
     Dosage: 600?2000 MG/DAY, 2 TO 5 TIMES DAILY
     Route: 048
     Dates: start: 20190815, end: 20191004
  62. CALONAL [Concomitant]
     Active Substance: ACETAMINOPHEN
     Indication: HEADACHE
     Dosage: 800?1600 MG/DAY, 3 TO 4 TIMES DAILY
     Route: 048
     Dates: start: 20190927, end: 20191002
  63. CALONAL [Concomitant]
     Active Substance: ACETAMINOPHEN
     Route: 048
     Dates: start: 20191006, end: 20191008
  64. FUROSEMIDE. [Concomitant]
     Active Substance: FUROSEMIDE
     Route: 041
     Dates: start: 20191002, end: 20191006
  65. POTASSIUM CANRENOATE [Concomitant]
     Active Substance: CANRENOATE POTASSIUM
     Route: 041
     Dates: start: 20191001, end: 20191015
  66. FLAGYL [Concomitant]
     Active Substance: METRONIDAZOLE\METRONIDAZOLE HYDROCHLORIDE
     Indication: VAGINAL INFECTION
     Route: 048
     Dates: start: 20190821, end: 20190831
  67. HEPARINOID [Concomitant]
     Active Substance: CHONDROITIN SULFATE (BOVINE)
     Indication: SKIN MASS
     Dosage: ADEQUATE DOSE, THRICE DAILY
     Route: 061
     Dates: start: 20190911, end: 20191016
  68. SODIUM PHOSPHATE [Concomitant]
     Active Substance: SODIUM PHOSPHATE
     Indication: HYPOPHOSPHATAEMIA
     Route: 041
     Dates: start: 20190913, end: 20190913
  69. ASP2215 [Suspect]
     Active Substance: GILTERITINIB
     Route: 048
     Dates: start: 20190827, end: 20190923
  70. DAUNOMYCIN [DAUNORUBICIN HYDROCHLORIDE] [Concomitant]
     Active Substance: DAUNORUBICIN HYDROCHLORIDE
     Indication: PRODUCT USED FOR UNKNOWN INDICATION
     Route: 065
  71. VANCOMYCIN [Concomitant]
     Active Substance: VANCOMYCIN
     Indication: FEBRILE NEUTROPENIA
     Route: 041
     Dates: start: 20190818, end: 20190819
  72. VANCOMYCIN [Concomitant]
     Active Substance: VANCOMYCIN
     Route: 041
     Dates: start: 20190820, end: 20190903
  73. VANCOMYCIN [Concomitant]
     Active Substance: VANCOMYCIN
     Route: 041
     Dates: start: 20190904, end: 20190904
  74. VANCOMYCIN [Concomitant]
     Active Substance: VANCOMYCIN
     Dosage: UNK UNK, ONCE DAILY
     Route: 041
     Dates: start: 20190911, end: 20190918
  75. TAZOPIPE [Concomitant]
     Active Substance: PIPERACILLIN SODIUM\TAZOBACTAM SODIUM
     Route: 041
     Dates: start: 20190906, end: 20190906

REACTIONS (8)
  - Hypokalaemia [Not Recovered/Not Resolved]
  - Electrocardiogram QT prolonged [Recovering/Resolving]
  - Skin mass [Recovering/Resolving]
  - Liver disorder [Not Recovered/Not Resolved]
  - Hypomagnesaemia [Recovering/Resolving]
  - Cardiac failure acute [Recovering/Resolving]
  - Myelosuppression [Recovered/Resolved]
  - Pyrexia [Recovered/Resolved]

NARRATIVE: CASE EVENT DATE: 20190802
